FAERS Safety Report 17192217 (Version 2)
Quarter: 2019Q4

REPORT INFORMATION
  Report Type: Report from Study
  Country: IT (occurrence: IT)
  Receive Date: 20191223
  Receipt Date: 20191230
  Transmission Date: 20200122
  Serious: Yes (Death, Other)
  Sender: FDA-Public Use
  Company Number: IT-PFIZER INC-2019549951

PATIENT
  Age: 62 Year
  Sex: Female

DRUGS (1)
  1. LORLATINIB [Suspect]
     Active Substance: LORLATINIB
     Dosage: UNK

REACTIONS (6)
  - Hemiplegia [Unknown]
  - Motor dysfunction [Unknown]
  - Aphasia [Unknown]
  - Brain oedema [Unknown]
  - Death [Fatal]
  - Language disorder [Unknown]
